FAERS Safety Report 17864288 (Version 2)
Quarter: 2020Q2

REPORT INFORMATION
  Report Type: Report from Study
  Country: None (occurrence: ES)
  Receive Date: 20200605
  Receipt Date: 20200609
  Transmission Date: 20200714
  Serious: Yes (Hospitalization, Other)
  Sender: FDA-Public Use
  Company Number: ES-ABBVIE-20K-144-3425040-00

PATIENT
  Age: 74 Year
  Sex: Female
  Weight: 45 kg

DRUGS (3)
  1. DUODOPA [Suspect]
     Active Substance: CARBIDOPA\LEVODOPA
     Indication: PARKINSON^S DISEASE
     Route: 050
     Dates: start: 20171212, end: 20200527
  2. DUODOPA [Suspect]
     Active Substance: CARBIDOPA\LEVODOPA
     Route: 050
     Dates: start: 20200528
  3. APOMORPHINE [Concomitant]
     Active Substance: APOMORPHINE
     Indication: PRODUCT USED FOR UNKNOWN INDICATION

REACTIONS (22)
  - Obstruction [Unknown]
  - Myocardial necrosis marker increased [Unknown]
  - Blood sodium abnormal [Unknown]
  - Polyuria [Unknown]
  - Musculoskeletal stiffness [Recovered/Resolved]
  - Urinary tract infection [Recovered/Resolved]
  - Pyrexia [Recovered/Resolved]
  - On and off phenomenon [Not Recovered/Not Resolved]
  - Loss of consciousness [Unknown]
  - Hypercholesterolaemia [Recovered/Resolved with Sequelae]
  - Myocardial infarction [Recovered/Resolved with Sequelae]
  - Device issue [Unknown]
  - Hyperhidrosis [Unknown]
  - Abdominal pain [Unknown]
  - Renal impairment [Recovered/Resolved with Sequelae]
  - Renal failure [Recovered/Resolved]
  - Device physical property issue [Unknown]
  - Blood potassium abnormal [Unknown]
  - Oliguria [Recovered/Resolved]
  - Tremor [Recovered/Resolved]
  - Muscle rigidity [Recovered/Resolved]
  - Drug ineffective [Unknown]

NARRATIVE: CASE EVENT DATE: 2020
